FAERS Safety Report 8885705 (Version 3)
Quarter: 2013Q2

REPORT INFORMATION
  Report Type: Spontaneous
  Country: JP (occurrence: JP)
  Receive Date: 20121105
  Receipt Date: 20130625
  Transmission Date: 20140414
  Serious: Yes (Death, Hospitalization, Other)
  Sender: FDA-Public Use
  Company Number: PHHY2012JP099622

PATIENT
  Age: 44 Year
  Sex: Female

DRUGS (7)
  1. ZOMETA [Suspect]
     Indication: METASTASES TO BONE
     Dosage: UNK
     Route: 041
     Dates: start: 200901
  2. TAMOXIFEN [Concomitant]
     Dosage: UNK
     Route: 048
     Dates: start: 200802
  3. CAPECITABINE [Concomitant]
     Dosage: UNK UKN, UNK
     Route: 048
     Dates: start: 200901
  4. GLYCEOL [Concomitant]
     Dosage: UNK
     Route: 042
  5. RINDERON [Concomitant]
     Dosage: UNK
     Route: 042
  6. DOCETAXEL [Concomitant]
     Dosage: UNK
     Route: 041
     Dates: start: 200812
  7. DOCETAXEL [Concomitant]
     Dosage: UNK
     Route: 041
     Dates: end: 201101

REACTIONS (13)
  - Cardiac failure [Fatal]
  - Pneumonia [Fatal]
  - Condition aggravated [Fatal]
  - Brain abscess [Unknown]
  - Sinusitis [Unknown]
  - Osteonecrosis of jaw [Unknown]
  - Osteomyelitis [Unknown]
  - Metastases to central nervous system [Unknown]
  - Disorientation [Unknown]
  - Brain oedema [Unknown]
  - Intracranial pressure increased [Unknown]
  - Haemoglobin decreased [Unknown]
  - Blood pressure decreased [Unknown]
